FAERS Safety Report 11259870 (Version 1)
Quarter: 2015Q3

REPORT INFORMATION
  Report Type: Spontaneous
  Country: US (occurrence: None)
  Receive Date: 20150709
  Receipt Date: 20150709
  Transmission Date: 20151125
  Serious: No
  Sender: FDA-Public Use
  Company Number: None

PATIENT
  Age: 56 Year
  Sex: Female

DRUGS (4)
  1. HYDROXYZINE [Concomitant]
     Active Substance: HYDROXYZINE\HYDROXYZINE HYDROCHLORIDE
  2. URSODIOL. [Concomitant]
     Active Substance: URSODIOL
  3. PREDNISONE. [Concomitant]
     Active Substance: PREDNISONE
  4. LAMISIL [Suspect]
     Active Substance: TERBINAFINE HYDROCHLORIDE
     Indication: NAIL INFECTION
     Dates: start: 20140502, end: 20140602

REACTIONS (6)
  - Pruritus [None]
  - Drug-induced liver injury [None]
  - Gallbladder disorder [None]
  - Dry mouth [None]
  - Cholestasis [None]
  - Fatigue [None]

NARRATIVE: CASE EVENT DATE: 20140529
